FAERS Safety Report 13175900 (Version 1)
Quarter: 2017Q1

REPORT INFORMATION
  Report Type: Report from Study
  Country: AT (occurrence: AT)
  Receive Date: 20170201
  Receipt Date: 20170201
  Transmission Date: 20170428
  Serious: Yes (Death, Hospitalization, Other)
  Sender: FDA-Public Use
  Company Number: AT-INCYTE CORPORATION-2015IN000350

PATIENT
  Age: 80 Year
  Sex: Male

DRUGS (43)
  1. ASCALAN [Concomitant]
     Active Substance: DOXAZOSIN MESYLATE
     Dosage: 8 MG, UNK
  2. RANIC [Concomitant]
  3. RANIC [Concomitant]
  4. RANIC [Concomitant]
  5. ASCALAN [Concomitant]
     Active Substance: DOXAZOSIN MESYLATE
  6. DIMINOL [Concomitant]
  7. RANIC [Concomitant]
  8. JAKAVI [Suspect]
     Active Substance: RUXOLITINIB
     Dosage: 20 MG, UNK
     Route: 048
     Dates: start: 20140616, end: 20141124
  9. ASCALAN [Concomitant]
     Active Substance: DOXAZOSIN MESYLATE
  10. BUSCOPAN [Concomitant]
     Active Substance: BUTYLSCOPOLAMINE BROMIDE
     Route: 065
  11. RANIC [Concomitant]
  12. JAKAVI [Suspect]
     Active Substance: RUXOLITINIB
     Indication: MYELOFIBROSIS
     Dosage: 40 MG, UNK
     Route: 048
     Dates: start: 20130314, end: 20130428
  13. JAKAVI [Suspect]
     Active Substance: RUXOLITINIB
     Dosage: 30 MG, UNK
     Route: 048
     Dates: start: 20140403, end: 20140615
  14. JAKAVI [Suspect]
     Active Substance: RUXOLITINIB
     Dosage: 25 MG, UNK
     Route: 048
     Dates: start: 20141125, end: 20150208
  15. DIMINOL [Concomitant]
  16. DIMINOL [Concomitant]
  17. ACETIN//ACETYLSALICYLIC ACID [Concomitant]
     Indication: CARDIOVASCULAR EVENT PROPHYLAXIS
  18. ACETIN//ACETYLSALICYLIC ACID [Concomitant]
     Dosage: 100 MG, EVERY SECOND DAY
  19. JAKAVI [Suspect]
     Active Substance: RUXOLITINIB
     Dosage: 20 MG, UNK
     Route: 048
     Dates: start: 20130429, end: 20140402
  20. DIMINOL [Concomitant]
     Indication: SLEEP DISORDER
     Dosage: 80 MG, UNK
     Route: 065
  21. DIMINOL [Concomitant]
  22. DIMINOL [Concomitant]
  23. DIMINOL [Concomitant]
     Dosage: 80 MG, UNK
     Route: 065
  24. BUSCOPAN [Concomitant]
     Active Substance: BUTYLSCOPOLAMINE BROMIDE
     Route: 065
  25. BUSCOPAN [Concomitant]
     Active Substance: BUTYLSCOPOLAMINE BROMIDE
     Dosage: UNK
     Route: 065
  26. RANIC [Concomitant]
  27. ACETIN//ACETYLSALICYLIC ACID [Concomitant]
     Indication: PRODUCT USED FOR UNKNOWN INDICATION
     Dosage: 100 MG, (EVERY SECOND DAY)
     Route: 065
  28. ACETIN//ACETYLSALICYLIC ACID [Concomitant]
     Dosage: 100 MG, EVERY SECOND DAY
     Route: 065
  29. ASCALAN [Concomitant]
     Active Substance: DOXAZOSIN MESYLATE
     Indication: PRODUCT USED FOR UNKNOWN INDICATION
     Dosage: 8 MG, (0-0-0-1/2)
     Route: 065
  30. ASCALAN [Concomitant]
     Active Substance: DOXAZOSIN MESYLATE
     Dosage: 8 MG, UNK
  31. ASCALAN [Concomitant]
     Active Substance: DOXAZOSIN MESYLATE
     Dosage: 8 MG, UNK
  32. BUSCOPAN [Concomitant]
     Active Substance: BUTYLSCOPOLAMINE BROMIDE
     Route: 065
  33. BUSCOPAN [Concomitant]
     Active Substance: BUTYLSCOPOLAMINE BROMIDE
     Route: 065
  34. BUSCOPAN [Concomitant]
     Active Substance: BUTYLSCOPOLAMINE BROMIDE
     Route: 065
  35. ACETIN//ACETYLSALICYLIC ACID [Concomitant]
     Dosage: 100 MG, EVERY SECOND DAY
     Route: 065
  36. BUSCOPAN [Concomitant]
     Active Substance: BUTYLSCOPOLAMINE BROMIDE
     Indication: PRODUCT USED FOR UNKNOWN INDICATION
     Dosage: UNK
     Route: 065
  37. RANIC [Concomitant]
     Indication: PRODUCT USED FOR UNKNOWN INDICATION
     Dosage: 300 MG, QD (0-0-1)
     Route: 065
  38. ACETIN//ACETYLSALICYLIC ACID [Concomitant]
  39. ACETIN//ACETYLSALICYLIC ACID [Concomitant]
     Dosage: 100 MG, EVERY SECOND DAY
     Route: 065
  40. JAKAVI [Suspect]
     Active Substance: RUXOLITINIB
     Dosage: 20 MG, UNK
     Route: 048
     Dates: start: 20150209, end: 20151005
  41. JAKAVI [Suspect]
     Active Substance: RUXOLITINIB
     Dosage: 15 MG, UNK
     Route: 048
     Dates: start: 20151006, end: 20151106
  42. JAKAVI [Suspect]
     Active Substance: RUXOLITINIB
     Dosage: 20 MG, UNK
     Route: 048
     Dates: start: 20151207, end: 2016
  43. ASCALAN [Concomitant]
     Active Substance: DOXAZOSIN MESYLATE
     Dosage: 8 MG, UNK

REACTIONS (15)
  - Death [Fatal]
  - Blood pressure systolic increased [Unknown]
  - Blood cholinesterase decreased [Unknown]
  - Eosinophil count decreased [Unknown]
  - Lymphocyte count decreased [Unknown]
  - White blood cell count increased [Unknown]
  - Thrombocytopenia [Recovered/Resolved]
  - Thrombocytopenia [Recovered/Resolved]
  - Osteochondrosis [Unknown]
  - Anaemia [Recovered/Resolved]
  - Amylase decreased [Unknown]
  - General physical health deterioration [Recovered/Resolved]
  - Calculus urinary [Recovered/Resolved]
  - Bilirubin conjugated increased [Unknown]
  - Lipase decreased [Unknown]

NARRATIVE: CASE EVENT DATE: 20140616
